FAERS Safety Report 15670625 (Version 3)
Quarter: 2019Q3

REPORT INFORMATION
  Report Type: Report from Study
  Country: BR (occurrence: BR)
  Receive Date: 20181129
  Receipt Date: 20190704
  Transmission Date: 20191004
  Serious: Yes (Hospitalization, Other)
  Sender: FDA-Public Use
  Company Number: BR-ALEXION PHARMACEUTICALS INC.-A201815593

PATIENT
  Age: 28 Year
  Sex: Female
  Weight: 74 kg

DRUGS (2)
  1. SOLIRIS [Suspect]
     Active Substance: ECULIZUMAB
     Indication: ATYPICAL HAEMOLYTIC URAEMIC SYNDROME
     Dosage: 900 MG, EVERY 7 DAYS
     Route: 042
     Dates: start: 20150714, end: 20150804
  2. SOLIRIS [Suspect]
     Active Substance: ECULIZUMAB
     Dosage: 1200 MG, EVERY 14 DAYS
     Route: 042
     Dates: start: 20150812

REACTIONS (12)
  - Platelet count increased [Recovered/Resolved]
  - Pain [Unknown]
  - Blood test abnormal [Unknown]
  - Infection [Unknown]
  - Erythema [Unknown]
  - Sinusitis [Unknown]
  - Inappropriate schedule of product administration [Recovered/Resolved]
  - Gastrointestinal infection [Unknown]
  - Leukocytosis [Recovered/Resolved]
  - Blood urea increased [Recovered/Resolved]
  - Sepsis [Unknown]
  - Blood creatinine increased [Recovered/Resolved]

NARRATIVE: CASE EVENT DATE: 201808
